FAERS Safety Report 25285680 (Version 1)
Quarter: 2025Q2

REPORT INFORMATION
  Report Type: Spontaneous
  Country: US (occurrence: US)
  Receive Date: 20250509
  Receipt Date: 20250509
  Transmission Date: 20250717
  Serious: No
  Sender: STALLERGENES
  Company Number: US-STALCOR-2025-AER-00616

PATIENT
  Sex: Female

DRUGS (2)
  1. PALFORZIA [Suspect]
     Active Substance: PEANUT
     Indication: Food allergy
     Dosage: 300MG: MAINTENANCE: MIX CONTENTS OF 1 SACHET WELL WITH SEMISOLID FOOD AS DIRECTED AND CONSUME ONCE D
     Route: 048
     Dates: start: 2023
  2. PALFORZIA [Suspect]
     Active Substance: PEANUT
     Dosage: REACTIVE DOSE DISPENSED PRIOR TO ONSET OF REPORTED AES?300MG: MAINTENANCE: LAST DISPENSED ON 22-JAN-
     Route: 048
     Dates: start: 202501

REACTIONS (3)
  - Illness [Unknown]
  - Pyrexia [Unknown]
  - Product dose omission issue [Unknown]
